FAERS Safety Report 21447761 (Version 1)
Quarter: 2022Q4

REPORT INFORMATION
  Report Type: Report from Study
  Country: DE (occurrence: DE)
  Receive Date: 20221012
  Receipt Date: 20221012
  Transmission Date: 20230113
  Serious: Yes (Other)
  Sender: FDA-Public Use
  Company Number: DE-MYLANLABS-2021M1021104

PATIENT
  Age: 31 Year
  Sex: Female

DRUGS (9)
  1. IBUPROFEN [Suspect]
     Active Substance: IBUPROFEN
     Indication: Product used for unknown indication
     Dosage: 600 MILLIGRAM, 2 DAYS PER WEEK, THERAPY END DATE : NASK
     Route: 065
     Dates: start: 20100915
  2. CIMZIA [Suspect]
     Active Substance: CERTOLIZUMAB PEGOL
     Indication: Product used for unknown indication
     Dosage: 200 MILLIGRAM, THERAPY END DATE : ASKU
     Dates: start: 20211006
  3. HULIO [Suspect]
     Active Substance: ADALIMUMAB-FKJP
     Indication: Product used for unknown indication
     Dosage: 40 MILLIGRAM,DURATION : 127 DAYS
     Dates: start: 20200108, end: 20200513
  4. HULIO [Suspect]
     Active Substance: ADALIMUMAB-FKJP
     Dosage: 40 MILLIGRAM, THERAPY END DATE : ASKU
     Dates: start: 20200108
  5. ETANERCEPT [Suspect]
     Active Substance: ETANERCEPT
     Indication: Product used for unknown indication
     Dosage: 50 MILLIGRAM, WE, THERAPY END DATE : ASKU, FREQUENCY TIME : 1 WEEK
     Dates: start: 20201007
  6. ETANERCEPT [Suspect]
     Active Substance: ETANERCEPT
     Dosage: 50 MILLIGRAM, QW (WE), FREQUENCY TIME : 1 WEEK, DURATION : 83 DAYS
     Dates: start: 20201007, end: 20201228
  7. ETANERCEPT [Suspect]
     Active Substance: ETANERCEPT
     Dosage: 50 MILLIGRAM, DURATION : 339 DAYS
     Dates: start: 20201007, end: 20210910
  8. ENBREL [Suspect]
     Active Substance: ETANERCEPT
     Indication: Product used for unknown indication
     Dosage: 25 MILLIGRAM, DURATION : 148 DAYS
     Dates: start: 20200513, end: 20201007
  9. ENBREL [Suspect]
     Active Substance: ETANERCEPT
     Dosage: 25 MILLIGRAM (START DATE 13-MAY-2022), THERAPY START DATE AND END DATE : ASKU

REACTIONS (3)
  - Iridocyclitis [Unknown]
  - Abortion spontaneous [Recovered/Resolved]
  - Maternal exposure during pregnancy [Recovered/Resolved]

NARRATIVE: CASE EVENT DATE: 20201121
